FAERS Safety Report 15927559 (Version 3)
Quarter: 2019Q2

REPORT INFORMATION
  Report Type: Spontaneous
  Country: JP (occurrence: JP)
  Receive Date: 20190206
  Receipt Date: 20190603
  Transmission Date: 20190711
  Serious: Yes (Other)
  Sender: FDA-Public Use
  Company Number: JP-PFIZER INC-2019046694

PATIENT
  Age: 70 Year
  Sex: Male
  Weight: 73 kg

DRUGS (1)
  1. XALKORI [Suspect]
     Active Substance: CRIZOTINIB
     Indication: LUNG NEOPLASM MALIGNANT
     Dosage: 250 MG, 2X/DAY
     Route: 048
     Dates: start: 20190108, end: 20190122

REACTIONS (4)
  - Renal impairment [Recovered/Resolved]
  - Condition aggravated [Recovering/Resolving]
  - Platelet count increased [Unknown]
  - Hepatic function abnormal [Recovering/Resolving]

NARRATIVE: CASE EVENT DATE: 20190115
